FAERS Safety Report 5059543-2 (Version None)
Quarter: 2006Q3

REPORT INFORMATION
  Report Type: 
  Country: None (occurrence: None)
  Receive Date: 20060724
  Receipt Date: 20060711
  Transmission Date: 20061208
  Serious: No
  Sender: FDA-Public Use
  Company Number: AT-NOVOPROD-254761

PATIENT

DRUGS (1)
  1. NOVOSEVEN [Suspect]
     Indication: CEREBRAL HAEMORRHAGE
     Dosage: 1 DOSE
     Route: 042
     Dates: start: 20060607, end: 20060607

REACTIONS (2)
  - THROMBOPHLEBITIS SUPERFICIAL [None]
  - THROMBOSIS [None]
